FAERS Safety Report 15531888 (Version 1)
Quarter: 2018Q4

REPORT INFORMATION
  Report Type: Spontaneous
  Country: IT (occurrence: IT)
  Receive Date: 20181019
  Receipt Date: 20181019
  Transmission Date: 20190205
  Serious: Yes (Hospitalization, Other)
  Sender: FDA-Public Use
  Company Number: IT-ACCORD-073601

PATIENT
  Age: 54 Year
  Sex: Male

DRUGS (8)
  1. CALCIUM [Concomitant]
     Active Substance: CALCIUM
     Dosage: UNK
     Dates: start: 201702
  2. CALCIUM FOLINATE/FOLINIC ACID [Suspect]
     Active Substance: LEUCOVORIN CALCIUM
     Indication: COLON CANCER METASTATIC
     Dosage: 200 MG/M2, CYCLIC
     Dates: start: 20170223
  3. VITAMIN D [Concomitant]
     Active Substance: CHOLECALCIFEROL
     Dosage: UNK
     Dates: start: 201702
  4. FLUOROURACIL. [Suspect]
     Active Substance: FLUOROURACIL
     Indication: COLON CANCER METASTATIC
     Dosage: ALSO TAKEN 2400 MG/M2 (46HOURS CONTINUING INFUSION)
     Route: 040
     Dates: start: 20170223
  5. DENOSUMAB [Concomitant]
     Active Substance: DENOSUMAB
     Dosage: UNK
     Dates: start: 201702
  6. IRINOTECAN [Concomitant]
     Active Substance: IRINOTECAN
     Indication: COLON CANCER METASTATIC
     Dosage: 165 MG/M2, CYCLIC
     Dates: start: 20170223
  7. OXALIPLATIN. [Suspect]
     Active Substance: OXALIPLATIN
     Indication: COLON CANCER METASTATIC
     Dosage: 85 MG/M2, CYCLIC
     Dates: start: 20170223
  8. BEVACIZUMAB. [Suspect]
     Active Substance: BEVACIZUMAB
     Indication: COLON CANCER METASTATIC
     Dosage: 5 MG/KG, CYCLIC (DAY 1, EVERY 14 DAYS)
     Route: 042
     Dates: start: 20170223

REACTIONS (1)
  - Limbic encephalitis [Recovering/Resolving]

NARRATIVE: CASE EVENT DATE: 20170403
